FAERS Safety Report 9655529 (Version 1)
Quarter: 2013Q4

REPORT INFORMATION
  Report Type: Report from Study
  Country: BR (occurrence: BR)
  Receive Date: 20131029
  Receipt Date: 20131029
  Transmission Date: 20140711
  Serious: Yes (Other)
  Sender: FDA-Public Use
  Company Number: BR-ROCHE-1296013

PATIENT
  Sex: Female
  Weight: 85 kg

DRUGS (2)
  1. XOLAIR [Suspect]
     Indication: ASTHMA
     Route: 065
  2. FORASEQ (BRAZIL) [Suspect]
     Indication: ASTHMA
     Route: 065

REACTIONS (3)
  - Hypertension [Recovering/Resolving]
  - Dyspnoea [Unknown]
  - Drug ineffective [Unknown]
